FAERS Safety Report 9542084 (Version 1)
Quarter: 2013Q3

REPORT INFORMATION
  Report Type: Report from Study
  Country: US (occurrence: US)
  Receive Date: 20130923
  Receipt Date: 20130923
  Transmission Date: 20140515
  Serious: Yes (Hospitalization, Other)
  Sender: FDA-Public Use
  Company Number: US-ASTELLAS-2013US009852

PATIENT
  Sex: Female

DRUGS (3)
  1. ERLOTINIB TABLET [Suspect]
     Indication: NON-SMALL CELL LUNG CANCER
     Dosage: UNK
     Route: 065
  2. AVASTIN /01555201/ [Suspect]
     Indication: NON-SMALL CELL LUNG CANCER
     Dosage: UNK
     Route: 065
  3. ALIMTA [Concomitant]
     Indication: PRODUCT USED FOR UNKNOWN INDICATION
     Dosage: UNK
     Route: 065

REACTIONS (5)
  - Lymphadenopathy [Unknown]
  - Chronic obstructive pulmonary disease [Unknown]
  - Myocardial infarction [Unknown]
  - Infection [Unknown]
  - Malignant neoplasm progression [Unknown]
